FAERS Safety Report 22636264 (Version 1)
Quarter: 2023Q2

REPORT INFORMATION
  Report Type: Report from Study
  Country: US (occurrence: US)
  Receive Date: 20230623
  Receipt Date: 20230623
  Transmission Date: 20230722
  Serious: Yes (Other)
  Sender: FDA-Public Use
  Company Number: US-JAZZ PHARMACEUTICALS-2023-US-010788

PATIENT
  Sex: Female

DRUGS (4)
  1. XYREM [Suspect]
     Active Substance: SODIUM OXYBATE
     Indication: Narcolepsy
     Dosage: UNK
  2. GABAPENTIN [Suspect]
     Active Substance: GABAPENTIN
     Indication: Product used for unknown indication
  3. METAXALONE [Suspect]
     Active Substance: METAXALONE
     Indication: Product used for unknown indication
  4. METHYLPHENIDATE [Concomitant]
     Active Substance: METHYLPHENIDATE
     Indication: Product used for unknown indication
     Dosage: UNK
     Dates: start: 20190508

REACTIONS (23)
  - Skin cancer [Unknown]
  - Nephrolithiasis [Unknown]
  - Hallucination [Unknown]
  - Bipolar disorder [Unknown]
  - Hypothyroidism [Unknown]
  - Feeling abnormal [Unknown]
  - Obstructive sleep apnoea syndrome [Unknown]
  - Abnormal uterine bleeding [Unknown]
  - Chronic obstructive pulmonary disease [Unknown]
  - Thyroid disorder [Unknown]
  - Gastrooesophageal reflux disease [Unknown]
  - Head injury [Unknown]
  - Post-traumatic stress disorder [Unknown]
  - Depression [Unknown]
  - Anxiety [Unknown]
  - Thyroid mass [Unknown]
  - Constipation [Unknown]
  - Exostosis [Unknown]
  - Memory impairment [Unknown]
  - Migraine [Unknown]
  - Fatigue [Unknown]
  - Exposure during pregnancy [Unknown]
  - Product administration interrupted [Unknown]
